FAERS Safety Report 21273286 (Version 3)
Quarter: 2022Q3

REPORT INFORMATION
  Report Type: Spontaneous
  Country: FR (occurrence: FR)
  Receive Date: 20220831
  Receipt Date: 20220907
  Transmission Date: 20221027
  Serious: Yes (Other)
  Sender: FDA-Public Use
  Company Number: FR-NOVARTISPH-NVSC2022FR179694

PATIENT
  Age: 39 Year
  Sex: Female
  Weight: 167 kg

DRUGS (9)
  1. ACETAMINOPHEN [Suspect]
     Active Substance: ACETAMINOPHEN
     Indication: Product used for unknown indication
     Dosage: UNK
     Route: 065
     Dates: start: 20190509
  2. PREDNISONE [Suspect]
     Active Substance: PREDNISONE
     Indication: Product used for unknown indication
     Dosage: 9 MG, QD
     Route: 048
     Dates: start: 20210509
  3. BENLYSTA [Suspect]
     Active Substance: BELIMUMAB
     Indication: Systemic lupus erythematosus
     Dosage: UNK
     Route: 042
     Dates: end: 201904
  4. BENLYSTA [Suspect]
     Active Substance: BELIMUMAB
     Dosage: UNK
     Route: 058
     Dates: start: 201905
  5. BENLYSTA [Suspect]
     Active Substance: BELIMUMAB
     Dosage: UNK
     Route: 065
     Dates: start: 201906
  6. BENLYSTA [Suspect]
     Active Substance: BELIMUMAB
     Dosage: 200 MG, QW
     Route: 058
     Dates: start: 20190502, end: 20190509
  7. BENLYSTA [Suspect]
     Active Substance: BELIMUMAB
     Dosage: 200 MG, QW
     Route: 058
     Dates: start: 20190502, end: 20190509
  8. BENLYSTA [Suspect]
     Active Substance: BELIMUMAB
     Dosage: 200 MG, QW
     Route: 058
     Dates: start: 201905
  9. BENLYSTA [Suspect]
     Active Substance: BELIMUMAB
     Dosage: 200 MG, QW
     Route: 058
     Dates: start: 20190628

REACTIONS (10)
  - Abdominal pain [Recovered/Resolved]
  - Musculoskeletal pain [Recovered/Resolved]
  - Fatigue [Recovered/Resolved]
  - Nausea [Recovered/Resolved]
  - Pyrexia [Unknown]
  - Chills [Unknown]
  - Vomiting [Unknown]
  - Drug intolerance [Recovered/Resolved]
  - Injection site rash [Unknown]
  - Injection site reaction [Unknown]

NARRATIVE: CASE EVENT DATE: 20190101
